FAERS Safety Report 8396568-3 (Version None)
Quarter: 2012Q2

REPORT INFORMATION
  Report Type: 
  Country: None (occurrence: None)
  Receive Date: 20120530
  Receipt Date: 20120521
  Transmission Date: 20120825
  Serious: Yes (Hospitalization)
  Sender: FDA-Public Use
  Company Number: US-JNJFOC-20120411625

PATIENT
  Sex: Male
  Weight: 86.18 kg

DRUGS (9)
  1. RISPERDAL CONSTA [Suspect]
     Indication: PRODUCT USED FOR UNKNOWN INDICATION
     Route: 030
  2. CLOZARIL [Concomitant]
     Indication: DEPRESSION
     Route: 065
  3. WELLBUTRIN [Concomitant]
     Indication: DEPRESSION
     Route: 065
  4. RISPERDAL CONSTA [Suspect]
     Route: 030
     Dates: start: 20120101
  5. INVEGA SUSTENNA [Suspect]
     Indication: PRODUCT USED FOR UNKNOWN INDICATION
     Route: 030
     Dates: end: 20120101
  6. RISPERDAL [Suspect]
     Route: 048
     Dates: start: 20120101
  7. RISPERDAL [Suspect]
     Route: 048
     Dates: start: 20120101
  8. PROPRANOLOL [Concomitant]
     Indication: DEPRESSION
     Route: 065
  9. RISPERDAL [Suspect]
     Indication: PRODUCT USED FOR UNKNOWN INDICATION
     Route: 048
     Dates: start: 19990101

REACTIONS (4)
  - HOSPITALISATION [None]
  - AKATHISIA [None]
  - WEIGHT INCREASED [None]
  - SELF-INJURIOUS IDEATION [None]
